FAERS Safety Report 6242893-1 (Version None)
Quarter: 2009Q2

REPORT INFORMATION
  Report Type: 
  Country: None (occurrence: None)
  Receive Date: 20090624
  Receipt Date: 20090618
  Transmission Date: 20091009
  Serious: Yes (Other)
  Sender: FDA-Public Use
  Company Number: US-ASTRAZENECA-2007UW05941

PATIENT
  Age: 433 Month
  Sex: Female
  Weight: 95.3 kg

DRUGS (4)
  1. SEROQUEL [Suspect]
     Indication: SLEEP DISORDER
     Dosage: 75-300 MG
     Route: 048
     Dates: start: 20030301, end: 20051202
  2. CLONOPIN [Concomitant]
  3. WELLBUTRIN [Concomitant]
  4. REMERON [Concomitant]

REACTIONS (2)
  - HYSTERECTOMY [None]
  - PANCREATITIS [None]
